FAERS Safety Report 7154492-8 (Version None)
Quarter: 2010Q4

REPORT INFORMATION
  Report Type: 
  Country: None (occurrence: None)
  Receive Date: 20101213
  Receipt Date: 20101201
  Transmission Date: 20110411
  Serious: Yes (Hospitalization, Other)
  Sender: FDA-Public Use
  Company Number: GB-BRISTOL-MYERS SQUIBB COMPANY-15421217

PATIENT
  Age: 47 Year
  Sex: Female

DRUGS (11)
  1. ARIPIPRAZOLE [Suspect]
     Indication: SCHIZOPHRENIA
     Dosage: 15MG DAILY DOSE
     Route: 048
     Dates: start: 20101001
  2. AMISULPRIDE [Suspect]
  3. CLOZARIL [Suspect]
     Indication: SCHIZOPHRENIA
     Route: 048
     Dates: start: 20060406
  4. LITHIUM [Suspect]
  5. ESCITALOPRAM [Concomitant]
     Indication: DEPRESSION
     Route: 048
  6. GLICLAZIDE [Concomitant]
     Indication: DIABETES MELLITUS
     Route: 048
     Dates: start: 20101116
  7. LEVOTHYROXINE [Concomitant]
     Indication: HYPOTHYROIDISM
  8. METFORMIN [Concomitant]
     Indication: DIABETES MELLITUS
     Route: 048
     Dates: start: 20100901
  9. OLANZAPINE [Concomitant]
     Indication: SCHIZOPHRENIA
     Route: 048
  10. RAMIPRIL [Concomitant]
     Indication: HYPERTENSION
     Route: 048
     Dates: start: 20100901
  11. VALPROATE SODIUM [Concomitant]
     Indication: AFFECTIVE DISORDER
     Route: 048

REACTIONS (4)
  - ELECTROCARDIOGRAM QT PROLONGED [None]
  - ELECTROCARDIOGRAM T WAVE INVERSION [None]
  - HALLUCINATION, VISUAL [None]
  - OVERDOSE [None]
